FAERS Safety Report 21990140 (Version 1)
Quarter: 2023Q1

REPORT INFORMATION
  Report Type: Spontaneous
  Country: US (occurrence: None)
  Receive Date: 20230213
  Receipt Date: 20230213
  Transmission Date: 20230418
  Serious: Yes (Other)
  Sender: FDA-Public Use
  Company Number: None

PATIENT
  Age: 27 Year
  Sex: Male
  Weight: 90 kg

DRUGS (3)
  1. AMMONIA INHALANTS [Suspect]
     Active Substance: AMMONIA
     Indication: Product used for unknown indication
     Dates: start: 20230110, end: 20230118
  2. CREATINE [Concomitant]
     Active Substance: CREATINE
  3. PROTEIN POWDER [Concomitant]

REACTIONS (8)
  - Dyspnoea [None]
  - Anxiety [None]
  - Migraine [None]
  - Eye irritation [None]
  - Nasal discomfort [None]
  - Throat irritation [None]
  - Lung disorder [None]
  - Burning sensation [None]
